FAERS Safety Report 24207456 (Version 1)
Quarter: 2024Q3

REPORT INFORMATION
  Report Type: Spontaneous
  Country: US (occurrence: US)
  Receive Date: 20240814
  Receipt Date: 20240814
  Transmission Date: 20241017
  Serious: Yes (Other)
  Sender: ABBVIE
  Company Number: US-ABBVIE-5873422

PATIENT
  Age: 16 Year
  Sex: Female
  Weight: 54 kg

DRUGS (1)
  1. LO LOESTRIN FE [Suspect]
     Active Substance: ETHINYL ESTRADIOL\NORETHINDRONE ACETATE
     Indication: Dysmenorrhoea
     Dosage: 1 TABLET
     Route: 048
     Dates: start: 20240325, end: 20240421

REACTIONS (2)
  - Suicidal ideation [Recovered/Resolved]
  - Off label use [Not Recovered/Not Resolved]

NARRATIVE: CASE EVENT DATE: 20240325
